FAERS Safety Report 20145640 (Version 2)
Quarter: 2022Q1

REPORT INFORMATION
  Report Type: Spontaneous
  Country: US (occurrence: US)
  Receive Date: 20211203
  Receipt Date: 20220114
  Transmission Date: 20220423
  Serious: No
  Sender: FDA-Public Use
  Company Number: US-PFIZER INC-202101532379

PATIENT
  Age: 14 Year
  Sex: Male
  Weight: 53.515 kg

DRUGS (2)
  1. GENOTROPIN [Suspect]
     Active Substance: SOMATROPIN
     Dosage: NIGHTLY INJECTION
     Dates: start: 20080831, end: 20211107
  2. GENOTROPIN [Suspect]
     Active Substance: SOMATROPIN
     Dosage: NIGHTLY INJECTION
     Dates: start: 20211103

REACTIONS (5)
  - Drug dose omission by device [Unknown]
  - Device breakage [Unknown]
  - Device physical property issue [Unknown]
  - Wrong technique in device usage process [Unknown]
  - Anger [Unknown]

NARRATIVE: CASE EVENT DATE: 20211101
